FAERS Safety Report 23179085 (Version 6)
Quarter: 2024Q1

REPORT INFORMATION
  Report Type: Report from Study
  Country: ZA (occurrence: ZA)
  Receive Date: 20231113
  Receipt Date: 20240129
  Transmission Date: 20240409
  Serious: Yes (Hospitalization, Other)
  Sender: FDA-Public Use
  Company Number: ZA-002147023-NVSC2023ZA238390

PATIENT
  Age: 24 Year
  Sex: Female

DRUGS (2)
  1. OFATUMUMAB [Suspect]
     Active Substance: OFATUMUMAB
     Indication: Multiple sclerosis
     Dosage: 20 MG, QMO
     Route: 058
  2. OFATUMUMAB [Suspect]
     Active Substance: OFATUMUMAB
     Dosage: 20 MG, QW
     Route: 058
     Dates: start: 20231027

REACTIONS (18)
  - Multiple sclerosis relapse [Recovering/Resolving]
  - Brain fog [Unknown]
  - Influenza like illness [Unknown]
  - Pain [Unknown]
  - Injection site discolouration [Unknown]
  - Superficial vein prominence [Unknown]
  - Secretion discharge [Recovering/Resolving]
  - Dysphonia [Recovering/Resolving]
  - Hypoaesthesia [Not Recovered/Not Resolved]
  - Peroneal nerve palsy [Not Recovered/Not Resolved]
  - Musculoskeletal stiffness [Not Recovered/Not Resolved]
  - Muscle spasms [Unknown]
  - Blister [Unknown]
  - Nausea [Unknown]
  - Dizziness [Unknown]
  - Temperature intolerance [Unknown]
  - Dyspnoea [Unknown]
  - Palpitations [Unknown]

NARRATIVE: CASE EVENT DATE: 20231106
